FAERS Safety Report 26025544 (Version 2)
Quarter: 2025Q4

REPORT INFORMATION
  Report Type: Spontaneous
  Country: EU (occurrence: EU)
  Receive Date: 20251111
  Receipt Date: 20251119
  Transmission Date: 20260118
  Serious: Yes (Other)
  Sender: AUROBINDO
  Company Number: EU-LRB-01093611

PATIENT
  Age: 73 Year
  Sex: Female
  Weight: 80 kg

DRUGS (1)
  1. CIPROFLOXACIN [Suspect]
     Active Substance: CIPROFLOXACIN
     Indication: Cystitis
     Dosage: 1 DOSAGE FORM, TABLET, 500 MG (MILLIGRAM),

REACTIONS (3)
  - Plantar fasciitis [Not Recovered/Not Resolved]
  - Bursitis [Not Recovered/Not Resolved]
  - Tendonitis [Not Recovered/Not Resolved]
